FAERS Safety Report 5033481-3 (Version None)
Quarter: 2006Q2

REPORT INFORMATION
  Report Type: 
  Country: None (occurrence: None)
  Receive Date: 20060621
  Receipt Date: 20060609
  Transmission Date: 20061013
  Serious: Yes (Other)
  Sender: FDA-Public Use
  Company Number: 233506K06USA

PATIENT
  Age: 52 Year
  Sex: Female

DRUGS (3)
  1. REBIF [Suspect]
     Indication: MULTIPLE SCLEROSIS
     Dates: start: 20020225, end: 20020512
  2. SYNTHROID [Concomitant]
  3. CYTOMEL [Concomitant]

REACTIONS (1)
  - BREAST CANCER FEMALE [None]
